FAERS Safety Report 7799669-3 (Version None)
Quarter: 2011Q4

REPORT INFORMATION
  Report Type: 
  Country: None (occurrence: None)
  Receive Date: 20111006
  Receipt Date: 20110927
  Transmission Date: 20120403
  Serious: Yes (Other)
  Sender: FDA-Public Use
  Company Number: CA-BAYER-2011-091096

PATIENT
  Sex: Female

DRUGS (2)
  1. STRATTERA [Concomitant]
     Dosage: UNK
     Dates: start: 20100201
  2. YASMIN [Suspect]
     Dosage: UNK
     Route: 048
     Dates: start: 20101001

REACTIONS (1)
  - ASTIGMATISM [None]
